FAERS Safety Report 6047498-3 (Version None)
Quarter: 2009Q1

REPORT INFORMATION
  Report Type: 
  Country: None (occurrence: None)
  Receive Date: 20090122
  Receipt Date: 20090113
  Transmission Date: 20090719
  Serious: Yes (Hospitalization)
  Sender: FDA-Public Use
  Company Number: SG-ROXANE LABORATORIES, INC.-2009-RO-00053RO

PATIENT
  Age: 65 Year
  Sex: Female

DRUGS (7)
  1. LITHIUM CARBONATE [Suspect]
     Indication: BIPOLAR DISORDER
  2. PAMIDRONATE DISODIUM [Suspect]
     Indication: HYPERCALCAEMIA
     Route: 042
  3. CARBIMAZOLE [Suspect]
     Indication: HYPERTHYROIDISM
     Dosage: 10MG
  4. CARBIMAZOLE [Suspect]
     Dosage: 20MG
  5. AMILORIDE HYDROCHLORIDE [Concomitant]
     Indication: NEPHROGENIC DIABETES INSIPIDUS
  6. VALPROATE SODIUM [Concomitant]
     Indication: BIPOLAR DISORDER
  7. HALOPERIDOL [Concomitant]
     Indication: BIPOLAR DISORDER

REACTIONS (4)
  - HYPERPARATHYROIDISM PRIMARY [None]
  - HYPERTHYROIDISM [None]
  - NEPHROGENIC DIABETES INSIPIDUS [None]
  - PARATHYROID TUMOUR BENIGN [None]
